FAERS Safety Report 23061957 (Version 2)
Quarter: 2024Q4

REPORT INFORMATION
  Report Type: Report from Study
  Country: US (occurrence: US)
  Receive Date: 20231013
  Receipt Date: 20241120
  Transmission Date: 20250115
  Serious: No
  Sender: NOVARTIS
  Company Number: US-002147023-NVSC2023US220352

PATIENT
  Age: 52 Year
  Sex: Male

DRUGS (2)
  1. ENTRESTO [Suspect]
     Active Substance: SACUBITRIL\VALSARTAN
     Indication: Product used for unknown indication
     Dosage: 1 DOSAGE FORM, BID
     Route: 048
     Dates: start: 2019
  2. ENTRESTO [Suspect]
     Active Substance: SACUBITRIL\VALSARTAN
     Dosage: 1 DOSAGE FORM (24.26MG), BID
     Route: 065

REACTIONS (5)
  - Nasopharyngitis [Unknown]
  - Decreased immune responsiveness [Unknown]
  - Cough [Recovering/Resolving]
  - Sinus congestion [Unknown]
  - Illness [Unknown]

NARRATIVE: CASE EVENT DATE: 20231006
